FAERS Safety Report 4511752-4 (Version None)
Quarter: 2004Q4

REPORT INFORMATION
  Report Type: 
  Country: None (occurrence: None)
  Receive Date: 20041123
  Receipt Date: 20041123
  Transmission Date: 20050328
  Serious: Yes (Other)
  Sender: FDA-Public Use
  Company Number: None

PATIENT
  Age: 52 Year
  Sex: Male
  Weight: 75.3 kg

DRUGS (10)
  1. MELOXICAM [Suspect]
  2. RAMIPRIL [Concomitant]
  3. BETAMETHASONE DIPROPIONATE [Concomitant]
  4. SIMVASTATIN [Concomitant]
  5. HYDROCODONE 5/ACETAMINOPHEN [Concomitant]
  6. METHOCARBAMOL [Concomitant]
  7. ATENOLOL [Concomitant]
  8. GEMFIBROZIL [Concomitant]
  9. MELOXICAM [Concomitant]
  10. FLUCINOLONE ACETONIDE [Concomitant]

REACTIONS (1)
  - RASH [None]
